FAERS Safety Report 6316537-4 (Version None)
Quarter: 2009Q3

REPORT INFORMATION
  Report Type: 
  Country: None (occurrence: None)
  Receive Date: 20090820
  Receipt Date: 20090811
  Transmission Date: 20100115
  Serious: Yes (Other)
  Sender: FDA-Public Use
  Company Number: US-JNJFOC-20090803846

PATIENT
  Sex: Female

DRUGS (2)
  1. NUCYNTA [Suspect]
     Indication: PAIN
     Route: 048
  2. ALBUTEROL [Concomitant]
     Indication: ASTHMA
     Route: 065

REACTIONS (3)
  - CHEST DISCOMFORT [None]
  - PALPITATIONS [None]
  - TINNITUS [None]
